FAERS Safety Report 9462181 (Version 2)
Quarter: 2013Q3

REPORT INFORMATION
  Report Type: Spontaneous
  Country: US (occurrence: None)
  Receive Date: 20130813
  Receipt Date: 20130828
  Transmission Date: 20140515
  Serious: Yes (Other)
  Sender: FDA-Public Use
  Company Number: JPI-P-034285

PATIENT
  Age: 12 Year
  Sex: Male
  Weight: 80.74 kg

DRUGS (9)
  1. XYREM [Suspect]
     Indication: CATAPLEXY
     Route: 048
     Dates: start: 20130714, end: 201307
  2. ALBUTEROL [Concomitant]
  3. MOMETASON FUROATE MONOHYDRATE [Concomitant]
  4. LANSOPRAZOLE [Concomitant]
  5. BECLOMETHASONE [Concomitant]
  6. LEVALBUTEROL TARTRATE [Concomitant]
  7. FAMOTIDEINE [Concomitant]
  8. POLYETHYLENE GLYCOL [Concomitant]
  9. PANTROPRAZOLE [Concomitant]

REACTIONS (15)
  - Convulsion [None]
  - Respiratory arrest [None]
  - Pupillary disorder [None]
  - Cyanosis [None]
  - Hyperhidrosis [None]
  - Fatigue [None]
  - Dysarthria [None]
  - Drug intolerance [None]
  - Abnormal sleep-related event [None]
  - Restlessness [None]
  - Fall [None]
  - Head injury [None]
  - Inappropriate schedule of drug administration [None]
  - Blood urea nitrogen/creatinine ratio increased [None]
  - Adverse drug reaction [None]
